FAERS Safety Report 5089391-9 (Version None)
Quarter: 2006Q3

REPORT INFORMATION
  Report Type: 
  Country: None (occurrence: None)
  Receive Date: 20060727
  Receipt Date: 20060510
  Transmission Date: 20061208
  Serious: Yes (Other)
  Sender: FDA-Public Use
  Company Number: 2006063827

PATIENT
  Age: 51 Year
  Sex: Female
  Weight: 76.2043 kg

DRUGS (10)
  1. LYRICA [Suspect]
     Indication: FIBROMYALGIA
     Dosage: 75 MG (75 MG, 2 IN 1 D)
     Dates: start: 20060201, end: 20060504
  2. LYRICA [Suspect]
     Indication: OSTEOARTHRITIS
     Dosage: 75 MG (75 MG, 2 IN 1 D)
     Dates: start: 20060201, end: 20060504
  3. PREMARIN [Concomitant]
  4. DYAZIDE [Concomitant]
  5. CYMBALA (DULOXETINE HYDROCHLORIDE) [Concomitant]
  6. DOXEPIN HCL [Concomitant]
  7. MS CONTIN [Concomitant]
  8. IBANDRONATE SODIUM (IBANDRONATE SODIUM) [Concomitant]
  9. K-DUR 10 [Concomitant]
  10. LASIX [Concomitant]

REACTIONS (1)
  - BLOOD THYROID STIMULATING HORMONE INCREASED [None]
